FAERS Safety Report 6176509-X (Version None)
Quarter: 2009Q2

REPORT INFORMATION
  Report Type: 
  Country: None (occurrence: None)
  Receive Date: 20090501
  Receipt Date: 20090423
  Transmission Date: 20091009
  Serious: Yes (Hospitalization, Other)
  Sender: FDA-Public Use
  Company Number: PHHY2008MX01823

PATIENT
  Age: 60 Year
  Sex: Female

DRUGS (5)
  1. DIOVAN [Suspect]
     Dosage: 80 MG, BID
     Route: 048
     Dates: start: 20070401, end: 20080901
  2. VARITON [Concomitant]
     Dosage: 1 TAB/DAY
     Route: 048
  3. EZETIMIBE [Concomitant]
     Dosage: 1 TAB/DAY
     Route: 048
  4. OGASTRO [Concomitant]
     Indication: GASTRITIS
     Dosage: 1 TAB/DAY
     Route: 048
  5. INDOMETHACIN [Concomitant]
     Indication: RHEUMATOID ARTHRITIS
     Dosage: 2 TABS/DAY
     Route: 048

REACTIONS (5)
  - APPENDICECTOMY [None]
  - APPENDICITIS [None]
  - BLOOD PRESSURE INADEQUATELY CONTROLLED [None]
  - HYPERTENSION [None]
  - TACHYARRHYTHMIA [None]
